FAERS Safety Report 11402862 (Version 1)
Quarter: 2015Q3

REPORT INFORMATION
  Report Type: Spontaneous
  Country: US (occurrence: US)
  Receive Date: 20150821
  Receipt Date: 20150821
  Transmission Date: 20151125
  Serious: No
  Sender: FDA-Public Use
  Company Number: US-ROCHE-1362195

PATIENT
  Sex: Female
  Weight: 62.65 kg

DRUGS (5)
  1. PEGASYS [Suspect]
     Active Substance: PEGINTERFERON ALFA-2A
     Indication: CHRONIC HEPATITIS C
     Route: 065
     Dates: start: 20140306
  2. SOVALDI [Suspect]
     Active Substance: SOFOSBUVIR
     Indication: CHRONIC HEPATITIS C
     Route: 048
     Dates: start: 20140306
  3. RIBAVIRIN. [Suspect]
     Active Substance: RIBAVIRIN
     Indication: CHRONIC HEPATITIS C
     Route: 048
     Dates: start: 20140306
  4. ASA [Concomitant]
     Active Substance: ASPIRIN
     Indication: MYALGIA
     Dosage: FREQUENCY: AS REQUIRED.
     Route: 048
  5. RIBAVIRIN. [Suspect]
     Active Substance: RIBAVIRIN
     Dosage: DOSE: 2AM, 3PM
     Route: 048

REACTIONS (5)
  - Back pain [Recovering/Resolving]
  - Retching [Unknown]
  - Nausea [Unknown]
  - Headache [Recovering/Resolving]
  - Chromaturia [Unknown]
